FAERS Safety Report 9069681 (Version 1)
Quarter: 2013Q1

REPORT INFORMATION
  Report Type: Spontaneous
  Country: CA (occurrence: CA)
  Receive Date: 20130215
  Receipt Date: 20130215
  Transmission Date: 20140127
  Serious: Yes (Other)
  Sender: FDA-Public Use
  Company Number: PHHY2013CA013712

PATIENT
  Age: 35 Month
  Sex: Female

DRUGS (1)
  1. VALPROIC ACID [Suspect]

REACTIONS (4)
  - Seizure cluster [Unknown]
  - Drug intolerance [Unknown]
  - Balance disorder [Unknown]
  - Coordination abnormal [Unknown]
